FAERS Safety Report 9807600 (Version 1)
Quarter: 2014Q1

REPORT INFORMATION
  Report Type: Spontaneous
  Country: US (occurrence: US)
  Receive Date: 20140110
  Receipt Date: 20140110
  Transmission Date: 20141002
  Serious: No
  Sender: FDA-Public Use
  Company Number: US-SANOFI-AVENTIS-2013SA052089

PATIENT
  Age: 88 Year
  Sex: Male

DRUGS (5)
  1. PLAVIX [Suspect]
     Indication: URINARY TRACT DISORDER
     Dates: start: 201212
  2. ACETYLSALICYLIC ACID [Concomitant]
     Indication: CARDIAC DISORDER
     Dates: start: 20130204
  3. FINASTERIDE [Concomitant]
     Indication: PROSTATIC DISORDER
     Dates: start: 2008
  4. FLOMAX [Concomitant]
     Indication: URINARY TRACT DISORDER
     Dates: start: 2008
  5. ATENOLOL [Concomitant]
     Indication: BLOOD PRESSURE
     Dates: start: 1996

REACTIONS (3)
  - Hypoaesthesia [Recovering/Resolving]
  - Sensory loss [Recovering/Resolving]
  - Skin discolouration [Recovering/Resolving]
